FAERS Safety Report 6574319-2 (Version None)
Quarter: 2010Q1

REPORT INFORMATION
  Report Type: 
  Country: None (occurrence: None)
  Receive Date: 20100201
  Receipt Date: 20100118
  Transmission Date: 20100710
  Serious: Yes (Hospitalization)
  Sender: FDA-Public Use
  Company Number: 2010AL000525

PATIENT
  Age: 86 Year
  Sex: Male

DRUGS (5)
  1. METFORMIN HYDROCHLORIDE [Suspect]
     Indication: DIABETES MELLITUS
     Dosage: 500 MG; BID; PO
     Route: 048
  2. GLICLAZIDE [Concomitant]
  3. CO-CARELDOPA [Concomitant]
  4. FUROSEMIDE [Concomitant]
  5. FLUOXETINE [Concomitant]

REACTIONS (2)
  - LACTIC ACIDOSIS [None]
  - SEPSIS [None]
